FAERS Safety Report 17994537 (Version 1)
Quarter: 2020Q3

REPORT INFORMATION
  Report Type: Spontaneous
  Country: FR (occurrence: FR)
  Receive Date: 20200708
  Receipt Date: 20200708
  Transmission Date: 20201103
  Serious: Yes (Death)
  Sender: FDA-Public Use
  Company Number: FR-MYLANLABS-2020M1061644

PATIENT
  Age: 81 Year
  Sex: Female

DRUGS (2)
  1. PACLITAXEL. [Suspect]
     Active Substance: PACLITAXEL
     Indication: OVARIAN CANCER
     Dosage: DEVELOPED CARDIOPULMONARY ARREST DURING CYCLE 2 OF TREATMENT
     Route: 042
  2. CARBOPLATIN. [Suspect]
     Active Substance: CARBOPLATIN
     Indication: OVARIAN CANCER
     Dosage: DEVELOPED CARDIOPULMONARY ARREST DURING CYCLE 2 OF TREATMENT
     Route: 042

REACTIONS (1)
  - Cardio-respiratory arrest [Fatal]
